FAERS Safety Report 7118115-6 (Version None)
Quarter: 2010Q4

REPORT INFORMATION
  Report Type: 
  Country: None (occurrence: None)
  Receive Date: 20101118
  Receipt Date: 20101118
  Transmission Date: 20110411
  Serious: Yes (Other)
  Sender: FDA-Public Use
  Company Number: None

PATIENT
  Age: 42 Year
  Sex: Female
  Weight: 64.4108 kg

DRUGS (2)
  1. ABILIFY [Suspect]
     Indication: BIPOLAR I DISORDER
     Dosage: 2MG DAILY PO; 5MG DAILY PO
     Route: 048
     Dates: start: 20100916, end: 20100923
  2. ABILIFY [Suspect]
     Indication: BIPOLAR I DISORDER
     Dosage: 2MG DAILY PO; 5MG DAILY PO
     Route: 048
     Dates: start: 20100924, end: 20101007

REACTIONS (5)
  - BRUXISM [None]
  - HYPOMANIA [None]
  - IMPAIRED WORK ABILITY [None]
  - POLYDIPSIA [None]
  - POLYURIA [None]
